FAERS Safety Report 13413301 (Version 7)
Quarter: 2019Q1

REPORT INFORMATION
  Report Type: Spontaneous
  Country: GB (occurrence: GB)
  Receive Date: 20170407
  Receipt Date: 20190205
  Transmission Date: 20190417
  Serious: Yes (Death, Hospitalization, Other)
  Sender: FDA-Public Use
  Company Number: GB-AUROBINDO-AUR-APL-2017-31785

PATIENT

DRUGS (42)
  1. CLOZAPINE. [Suspect]
     Active Substance: CLOZAPINE
     Indication: PSYCHOTIC DISORDER
     Dosage: 12.5 MILLIGRAM, ONCE A DAY
     Route: 065
     Dates: start: 20140908, end: 20140908
  2. CLOZAPINE. [Suspect]
     Active Substance: CLOZAPINE
     Indication: POST-TRAUMATIC STRESS DISORDER
     Dosage: 50 MILLIGRAM, ONCE A DAY (25 MG, BID)
     Route: 065
     Dates: start: 20140910, end: 20140911
  3. CLOZAPINE. [Suspect]
     Active Substance: CLOZAPINE
     Dosage: 25 MILLIGRAM, ONCE A DAY
     Route: 065
     Dates: start: 20140912, end: 20140913
  4. CLOZAPINE. [Suspect]
     Active Substance: CLOZAPINE
     Dosage: 75 MG, QD (25 MG AND 50 MG)
     Route: 065
     Dates: start: 20140913
  5. CLOZAPINE. [Suspect]
     Active Substance: CLOZAPINE
     Dosage: 50 MG, BID
     Route: 065
     Dates: start: 20140914, end: 20140914
  6. CLOZAPINE. [Suspect]
     Active Substance: CLOZAPINE
     Dosage: 50 MG ONCE DAILY AND 75 MG ONCE DAILY, 2X/DAY (BID) ()
     Route: 065
     Dates: start: 20140915, end: 20140915
  7. CLOZAPINE. [Suspect]
     Active Substance: CLOZAPINE
     Dosage: 100 MILLIGRAM, ONCE A DAY
     Route: 065
     Dates: start: 20140917
  8. CLOZAPINE. [Suspect]
     Active Substance: CLOZAPINE
     Dosage: 175 MG, QD (75 MG AND 100 MG)
     Route: 065
     Dates: start: 20140917, end: 20140917
  9. CLOZAPINE. [Suspect]
     Active Substance: CLOZAPINE
     Dosage: 225 MILLIGRAM, QD (75 MG AND 150 MG), 2X/DAY (BID)
     Route: 065
     Dates: start: 20140919
  10. CLOZAPINE. [Suspect]
     Active Substance: CLOZAPINE
     Indication: BORDERLINE PERSONALITY DISORDER
     Dosage: 25 MILLIGRAM, ONCE A DAY, 12.5 MG, BID
     Route: 065
     Dates: start: 20140909, end: 20140909
  11. CLOZAPINE. [Suspect]
     Active Substance: CLOZAPINE
     Indication: ANTISOCIAL PERSONALITY DISORDER
     Dosage: 50 MILLIGRAM, ONCE A DAY (25 MG, BID)
     Route: 065
     Dates: start: 20140911
  12. CLOZAPINE. [Suspect]
     Active Substance: CLOZAPINE
     Dosage: 125 MG, QD (50 MG AND 75 MG)
     Route: 065
     Dates: start: 20140915
  13. CLOZAPINE. [Suspect]
     Active Substance: CLOZAPINE
     Dosage: 200 MG, QD (75 MG AND 125 MG)
     Route: 065
     Dates: start: 20140918
  14. MIDAZOLAM [Suspect]
     Active Substance: MIDAZOLAM HYDROCHLORIDE
     Indication: PRODUCT USED FOR UNKNOWN INDICATION
     Dosage: UNK
     Route: 016
  15. CHLORPHENAMINE [Suspect]
     Active Substance: CHLORPHENIRAMINE MALEATE
     Indication: PRODUCT USED FOR UNKNOWN INDICATION
     Dosage: UNK
     Route: 065
  16. CLOZAPINE. [Suspect]
     Active Substance: CLOZAPINE
     Dosage: 75 MG, QD (25 MG AND 50 MG)
     Route: 065
     Dates: start: 20140912
  17. CLOZAPINE. [Suspect]
     Active Substance: CLOZAPINE
     Dosage: 150 MILLIGRAM, ONCE A DAY
     Route: 065
     Dates: start: 20140919
  18. CLOZAPINE. [Suspect]
     Active Substance: CLOZAPINE
     Dosage: 250 MG, QD (75 MG AND 175 MG)
     Route: 065
     Dates: start: 20140920, end: 20140920
  19. CETIRIZINE [Suspect]
     Active Substance: CETIRIZINE HYDROCHLORIDE
     Indication: PRODUCT USED FOR UNKNOWN INDICATION
     Dosage: UNK
     Route: 065
  20. CLOZAPINE. [Suspect]
     Active Substance: CLOZAPINE
     Dosage: 150 MILLIGRAM, ONCE A DAY, 75 MG, BID
     Route: 065
     Dates: start: 20140916
  21. CLOZAPINE. [Suspect]
     Active Substance: CLOZAPINE
     Dosage: 150 MG, QD (75 MG AND 75 MG)
     Route: 065
     Dates: start: 20140921, end: 20140921
  22. FENTANYL. [Suspect]
     Active Substance: FENTANYL
     Indication: PRODUCT USED FOR UNKNOWN INDICATION
     Dosage: UNK
     Route: 065
     Dates: start: 201409
  23. LITHIUM CARBONATE. [Suspect]
     Active Substance: LITHIUM CARBONATE
     Indication: PRODUCT USED FOR UNKNOWN INDICATION
     Dosage: UNK
     Route: 065
     Dates: start: 20141002, end: 201410
  24. MIRTAZEPINE TEVA [Concomitant]
     Active Substance: MIRTAZAPINE
     Indication: PRODUCT USED FOR UNKNOWN INDICATION
     Dosage: UNK
     Route: 065
  25. TRIMETHOPRIM. [Suspect]
     Active Substance: TRIMETHOPRIM
     Indication: PRODUCT USED FOR UNKNOWN INDICATION
     Dosage: UNK
     Route: 065
  26. CLOZAPINE. [Suspect]
     Active Substance: CLOZAPINE
     Dosage: 50 MG ONCE DAILY AND 75 MG ONCE DAILY, 2X/DAY (BID)
     Route: 065
     Dates: start: 20140915, end: 20140915
  27. CLOZAPINE. [Suspect]
     Active Substance: CLOZAPINE
     Dosage: 150 MILLIGRAM, ONCE A DAY, 75 MG, BID
     Route: 065
     Dates: start: 20140916, end: 20140916
  28. CLOZAPINE. [Suspect]
     Active Substance: CLOZAPINE
     Dosage: 250 MILLIGRAM, ONCE A DAY
     Route: 065
     Dates: start: 20140929, end: 20140930
  29. ATRACURIUM [Suspect]
     Active Substance: ATRACURIUM
     Indication: PRODUCT USED FOR UNKNOWN INDICATION
     Dosage: UNK
     Route: 065
  30. CLOZAPINE. [Suspect]
     Active Substance: CLOZAPINE
     Dosage: 75 MILLIGRAM, ONCE A DAY
     Route: 016
     Dates: start: 20140921
  31. CLOZAPINE. [Suspect]
     Active Substance: CLOZAPINE
     Dosage: 100 MG ONCE DAILY AND 225 MG ONCE DAILY, 2X/DAY (BID) ()
     Route: 065
     Dates: start: 20140922, end: 20140928
  32. CLOZAPINE. [Suspect]
     Active Substance: CLOZAPINE
     Dosage: 325 MG, QD (100 MG AND 225 MG)
     Route: 065
     Dates: start: 20140922, end: 20140928
  33. CLOZAPINE. [Suspect]
     Active Substance: CLOZAPINE
     Dosage: 25 MILLIGRAM, UNK. DOSE REDUCED
     Route: 065
     Dates: start: 20140930, end: 20141002
  34. CLOZAPINE. [Suspect]
     Active Substance: CLOZAPINE
     Dosage: 25 MILLIGRAM
     Route: 065
     Dates: start: 20140930, end: 20141002
  35. ZUCLOPENTHIXOL [Suspect]
     Active Substance: ZUCLOPENTHIXOL
     Indication: PRODUCT USED FOR UNKNOWN INDICATION
     Dosage: UNK
     Route: 065
  36. CLOZAPINE. [Suspect]
     Active Substance: CLOZAPINE
     Dosage: 25 MILLIGRAM, ONCE A DAY
     Route: 065
     Dates: start: 20140913
  37. CLOZAPINE. [Suspect]
     Active Substance: CLOZAPINE
     Dosage: 100 MILLIGRAM, TWO TIMES A DAY
     Route: 065
     Dates: start: 20140914
  38. CLOZAPINE. [Suspect]
     Active Substance: CLOZAPINE
     Dosage: 75 MG ONCE DAILY AND 125 MG ONCE DAILY, 2X/DAY (BID)
     Route: 065
     Dates: start: 20140918, end: 20140918
  39. CLOZAPINE. [Suspect]
     Active Substance: CLOZAPINE
     Dosage: 350 MG, QD (100 MG AND 250 MG)
     Route: 065
     Dates: start: 20140929, end: 20140930
  40. CLOZAPINE. [Suspect]
     Active Substance: CLOZAPINE
     Dosage: 100 MILLIGRAM, ONCE A DAY
     Route: 065
     Dates: start: 20140929, end: 20140930
  41. CLOZAPINE. [Suspect]
     Active Substance: CLOZAPINE
     Dosage: 50 MILLIGRAM, ONCE A DAY
     Route: 065
     Dates: start: 20140913
  42. HYDROXYZINE [Suspect]
     Active Substance: HYDROXYZINE HYDROCHLORIDE
     Indication: PRODUCT USED FOR UNKNOWN INDICATION
     Dosage: UNK
     Route: 065

REACTIONS (23)
  - Myelodysplastic syndrome [Fatal]
  - Personality disorder [Fatal]
  - Dizziness [Fatal]
  - Multiple organ dysfunction syndrome [Fatal]
  - Constipation [Fatal]
  - Product use in unapproved indication [Fatal]
  - Acute respiratory distress syndrome [Fatal]
  - Cardiac arrest [Fatal]
  - Malaise [Fatal]
  - Refusal of treatment by patient [Fatal]
  - Subarachnoid haemorrhage [Fatal]
  - Bone marrow failure [Fatal]
  - Agitation [Fatal]
  - Blood urea increased [Fatal]
  - Macrocytosis [Fatal]
  - Neutropenic sepsis [Fatal]
  - Subdural haemorrhage [Fatal]
  - Inflammation [Fatal]
  - Pneumocystis jirovecii pneumonia [Fatal]
  - Infection [Fatal]
  - Product use issue [Unknown]
  - Oropharyngeal pain [Fatal]
  - Tonsillar hypertrophy [Fatal]

NARRATIVE: CASE EVENT DATE: 2014
